FAERS Safety Report 10368877 (Version 1)
Quarter: 2014Q3

REPORT INFORMATION
  Report Type: Spontaneous
  Country: US (occurrence: US)
  Receive Date: 20140807
  Receipt Date: 20140807
  Transmission Date: 20150326
  Serious: Yes (Other)
  Sender: FDA-Public Use
  Company Number: US-PFIZER INC-2014216887

PATIENT

DRUGS (1)
  1. CYTOMEL [Suspect]
     Active Substance: LIOTHYRONINE SODIUM
     Dosage: UNK

REACTIONS (7)
  - Joint swelling [Unknown]
  - Dry mouth [Unknown]
  - Cognitive disorder [Unknown]
  - Coeliac disease [Unknown]
  - Inflammation [Unknown]
  - Rash [Unknown]
  - Feeling abnormal [Unknown]
